FAERS Safety Report 4596928-2 (Version None)
Quarter: 2005Q1

REPORT INFORMATION
  Report Type: 
  Country: None (occurrence: None)
  Receive Date: 20050228
  Receipt Date: 20050214
  Transmission Date: 20050727
  Serious: Yes (Other)
  Sender: FDA-Public Use
  Company Number: 2005007959

PATIENT
  Age: 59 Year
  Sex: Female
  Weight: 62.1428 kg

DRUGS (8)
  1. ALDACTONE [Suspect]
     Indication: HYPERTENSION
     Dosage: 25 MG (25 MG, DAILY), ORAL
     Route: 048
     Dates: start: 20021102, end: 20041201
  2. FOSINOPRIL SODIUM (FOSINOPRIL SODIUM) [Concomitant]
  3. ASCORBIC ACID [Concomitant]
  4. MAGNESIUM OXIDE (MAGNESIUM OXIDE) [Concomitant]
  5. TOCOPHEROL (TOCOPHEROL) [Concomitant]
  6. CALCIUM (CALCIUM) [Concomitant]
  7. LECITHIN (LECITHIN) [Concomitant]
  8. THIAZIDE DERIVATIVES (THIAZIDE DERIVATIVES) [Concomitant]

REACTIONS (9)
  - ALOPECIA [None]
  - FACE OEDEMA [None]
  - FLUID INTAKE REDUCED [None]
  - LUPUS NEPHRITIS [None]
  - POLLAKIURIA [None]
  - RASH ERYTHEMATOUS [None]
  - RED BLOOD CELLS URINE [None]
  - SYSTEMIC LUPUS ERYTHEMATOSUS RASH [None]
  - URINE OUTPUT DECREASED [None]
